FAERS Safety Report 10016001 (Version 1)
Quarter: 2014Q1

REPORT INFORMATION
  Report Type: Spontaneous
  Country: BR (occurrence: BR)
  Receive Date: 20140317
  Receipt Date: 20140317
  Transmission Date: 20141002
  Serious: Yes (Other)
  Sender: FDA-Public Use
  Company Number: PHHY2014BR031675

PATIENT
  Age: 61 Year
  Sex: Male

DRUGS (4)
  1. CODATEN [Suspect]
     Indication: TIBIAL TORSION
     Dosage: 1 DF, EVERY 12 HOURS
     Route: 048
     Dates: start: 20140311
  2. CODATEN [Suspect]
     Indication: PAIN
  3. CAPTOPRIL [Suspect]
     Dosage: 2 DF, DAILY
     Route: 048
     Dates: start: 2002
  4. CAPTOPRIL [Suspect]
     Dosage: 4 DF, DAILY
     Route: 048

REACTIONS (3)
  - Blood pressure increased [Unknown]
  - Diabetes mellitus [Unknown]
  - Nervousness [Unknown]
